FAERS Safety Report 6999478-9 (Version None)
Quarter: 2010Q3

REPORT INFORMATION
  Report Type: 
  Country: None (occurrence: None)
  Receive Date: 20100920
  Receipt Date: 20080218
  Transmission Date: 20110219
  Serious: Yes (Other)
  Sender: FDA-Public Use
  Company Number: US-ASTRAZENECA-2006UW27945

PATIENT
  Age: 743 Month
  Sex: Male
  Weight: 103 kg

DRUGS (19)
  1. SEROQUEL [Suspect]
     Indication: BIPOLAR DISORDER
     Dosage: 200-300 MG
     Route: 048
     Dates: start: 20010101
  2. SEROQUEL [Suspect]
     Indication: SCHIZOPHRENIA
     Dosage: 200-300 MG
     Route: 048
     Dates: start: 20010101
  3. ZYPREXA [Concomitant]
  4. LABETALOL HCL [Concomitant]
     Dates: start: 20010101
  5. HALDOL [Concomitant]
     Dates: start: 20010101
  6. CELEBREX [Concomitant]
     Dates: start: 20010101
  7. COGENTIN [Concomitant]
     Dates: start: 20010101
  8. ALTACE [Concomitant]
     Indication: INCREASED VENTRICULAR AFTERLOAD
     Dosage: 5 MG -10 MG
     Dates: start: 20070101
  9. ASPIRIN [Concomitant]
     Route: 048
     Dates: start: 20070101
  10. BUSPAR [Concomitant]
     Dates: start: 20070101
  11. CELEXA [Concomitant]
     Route: 048
     Dates: start: 20070101
  12. COLACE [Concomitant]
     Dates: start: 20070101
  13. COUMADIN [Concomitant]
     Indication: ANTICOAGULANT THERAPY
     Dosage: 2.5 AND 5 MG DAILY
     Route: 048
     Dates: start: 20070101
  14. DEPAKOTE [Concomitant]
     Route: 048
     Dates: start: 20070101
  15. DIGOXIN [Concomitant]
     Dosage: 125 MCG EVERY OTHER DAY
     Dates: start: 20070101
  16. LASIX [Concomitant]
     Route: 048
     Dates: start: 20070101
  17. ZOCOR [Concomitant]
     Indication: HYPERLIPIDAEMIA
     Dosage: 20-40 MG
     Route: 048
     Dates: start: 20070101
  18. TOPROL-XL [Concomitant]
     Dosage: 40-200 MG
     Dates: start: 20070101
  19. ZAROXOLYN [Concomitant]
     Dates: start: 20070101

REACTIONS (4)
  - DIABETES MELLITUS [None]
  - DIABETIC COMA [None]
  - DIABETIC KETOACIDOSIS [None]
  - TYPE 2 DIABETES MELLITUS [None]
